FAERS Safety Report 4301062-2 (Version None)
Quarter: 2004Q1

REPORT INFORMATION
  Report Type: 
  Country: None (occurrence: None)
  Receive Date: 20040219
  Receipt Date: 20040206
  Transmission Date: 20041129
  Serious: Yes (Other)
  Sender: FDA-Public Use
  Company Number: 2004197968US

PATIENT
  Age: 75 Year
  Sex: Female

DRUGS (1)
  1. EXEMESTANE    (EXEMESTANE ) [Suspect]
     Indication: BREAST CANCER METASTATIC

REACTIONS (2)
  - ACUTE GENERALISED EXANTHEMATOUS PUSTULOSIS [None]
  - FACE OEDEMA [None]
